FAERS Safety Report 5199496-X (Version None)
Quarter: 2006Q4

REPORT INFORMATION
  Report Type: 
  Country: None (occurrence: None)
  Receive Date: 20061229
  Receipt Date: 20061219
  Transmission Date: 20070319
  Serious: Yes (Other)
  Sender: FDA-Public Use
  Company Number: 2006PV000039

PATIENT
  Age: 23 Year
  Sex: Male

DRUGS (4)
  1. DEPOCYT [Suspect]
     Indication: BURKITT'S LYMPHOMA
     Dosage: 50 MG;X2;INTH
     Route: 037
     Dates: start: 20060721, end: 20061013
  2. METHOTREXATE [Concomitant]
  3. SENDOXAN [Concomitant]
  4. HOLOXAN [Concomitant]

REACTIONS (3)
  - EPILEPSY [None]
  - PUPIL FIXED [None]
  - VITH NERVE PARALYSIS [None]
